FAERS Safety Report 17110334 (Version 1)
Quarter: 2019Q4

REPORT INFORMATION
  Report Type: Spontaneous
  Country: US (occurrence: US)
  Receive Date: 20191203
  Receipt Date: 20191203
  Transmission Date: 20200122
  Serious: Yes (Hospitalization)
  Sender: FDA-Public Use
  Company Number: None

PATIENT
  Age: 53 Year
  Sex: Female

DRUGS (19)
  1. CRESTOR [Concomitant]
     Active Substance: ROSUVASTATIN CALCIUM
  2. AMARYL [Concomitant]
     Active Substance: GLIMEPIRIDE
  3. NAUZENE [Concomitant]
  4. SEROQUEL [Concomitant]
     Active Substance: QUETIAPINE FUMARATE
  5. VITAMIN E [Concomitant]
     Active Substance: .ALPHA.-TOCOPHEROL
  6. RENAVITE [Concomitant]
     Active Substance: ASCORBIC ACID\BIOTIN\CALCIUM PANTOTHENATE\CYANOCOBALAMIN\FOLIC ACID\NIACINAMIDE\PYRIDOXINE HYDROCHLORIDE\RIBOFLAVIN\THIAMINE MONONITRATE
  7. IRON SUPPLEMENT [Concomitant]
     Active Substance: IRON
  8. GLUCOSAMINE/CHONDROITIN [Concomitant]
  9. ENBREL [Suspect]
     Active Substance: ETANERCEPT
     Indication: PSORIASIS
     Route: 058
  10. CINNAMON. [Concomitant]
     Active Substance: CINNAMON
  11. SENSIPAR [Concomitant]
     Active Substance: CINACALCET HYDROCHLORIDE
  12. ULORIC [Concomitant]
     Active Substance: FEBUXOSTAT
  13. PREVIDENT [Concomitant]
     Active Substance: SODIUM FLUORIDE
  14. OMEGA [Concomitant]
     Active Substance: CONVALLARIA MAJALIS\CRATAEGUS LAEVIGATA LEAF\PROXYPHYLLINE
  15. CLOBETASOL [Concomitant]
     Active Substance: CLOBETASOL
  16. TYL ENOL [Concomitant]
  17. DEPAKOTE [Concomitant]
     Active Substance: DIVALPROEX SODIUM
  18. KLONOPIN [Concomitant]
     Active Substance: CLONAZEPAM
  19. SYNTHROID [Concomitant]
     Active Substance: LEVOTHYROXINE SODIUM

REACTIONS (3)
  - Dialysis [None]
  - Thrombosis [None]
  - Limb operation [None]

NARRATIVE: CASE EVENT DATE: 20191117
